FAERS Safety Report 12388365 (Version 1)
Quarter: 2016Q2

REPORT INFORMATION
  Report Type: Spontaneous
  Country: GB (occurrence: GB)
  Receive Date: 20160520
  Receipt Date: 20160520
  Transmission Date: 20160815
  Serious: Yes (Other)
  Sender: FDA-Public Use
  Company Number: GB-WATSON-2016-10131

PATIENT
  Age: 11 Year
  Sex: Female
  Weight: 33.11 kg

DRUGS (2)
  1. TOPIRAMATE. [Suspect]
     Active Substance: TOPIRAMATE
     Indication: MIGRAINE
     Dosage: 15 MG, QHS
     Route: 048
     Dates: start: 20160425, end: 20160427
  2. SALBUTAMOL [Concomitant]
     Active Substance: ALBUTEROL
     Indication: PRODUCT USED FOR UNKNOWN INDICATION
     Dosage: UNK UNK, UNKNOWN (INHALER)
     Route: 055

REACTIONS (9)
  - Nausea [Recovered/Resolved with Sequelae]
  - Mydriasis [Recovered/Resolved with Sequelae]
  - Decreased appetite [Unknown]
  - Diarrhoea [Recovered/Resolved with Sequelae]
  - Pallor [Unknown]
  - Vomiting [Recovered/Resolved with Sequelae]
  - Dizziness [Recovered/Resolved with Sequelae]
  - Epistaxis [Recovered/Resolved with Sequelae]
  - Somnolence [Recovered/Resolved with Sequelae]

NARRATIVE: CASE EVENT DATE: 20160426
